FAERS Safety Report 7091149-6 (Version None)
Quarter: 2010Q4

REPORT INFORMATION
  Report Type: 
  Country: None (occurrence: None)
  Receive Date: 20101109
  Receipt Date: 20101021
  Transmission Date: 20110411
  Serious: Yes (Other)
  Sender: FDA-Public Use
  Company Number: US-RB-014453-10

PATIENT
  Age: 52 Year
  Sex: Male

DRUGS (1)
  1. MUCINEX DM [Suspect]
     Indication: COUGH
     Route: 048
     Dates: start: 20101019

REACTIONS (2)
  - HYPOAESTHESIA [None]
  - INAPPROPRIATE SCHEDULE OF DRUG ADMINISTRATION [None]
